FAERS Safety Report 6262257-4 (Version None)
Quarter: 2009Q3

REPORT INFORMATION
  Report Type: 
  Country: None (occurrence: None)
  Receive Date: 20090709
  Receipt Date: 20090626
  Transmission Date: 20100115
  Serious: Yes (Life-Threatening, Hospitalization)
  Sender: FDA-Public Use
  Company Number: FR-GENENTECH-279642

PATIENT
  Age: 66 Year
  Sex: Female

DRUGS (2)
  1. AVASTIN [Suspect]
     Indication: BREAST CANCER
     Dosage: 10 MG/KG, Q3W
     Route: 042
     Dates: start: 20081002, end: 20081128
  2. TAXOTERE [Suspect]
     Indication: BREAST CANCER
     Dosage: 35 MG/M2, Q3W
     Route: 042
     Dates: start: 20081002, end: 20081128

REACTIONS (2)
  - DELIRIUM [None]
  - PSYCHIATRIC DECOMPENSATION [None]
